FAERS Safety Report 21491899 (Version 4)
Quarter: 2022Q4

REPORT INFORMATION
  Report Type: Spontaneous
  Country: CA (occurrence: CA)
  Receive Date: 20221021
  Receipt Date: 20221216
  Transmission Date: 20230112
  Serious: Yes (Death, Hospitalization)
  Sender: FDA-Public Use
  Company Number: CA-KARYOPHARM-2022KPT001195

PATIENT

DRUGS (4)
  1. XPOVIO [Suspect]
     Active Substance: SELINEXOR
     Indication: Plasma cell myeloma
     Dosage: 100 MG, WEEKLY
     Route: 048
     Dates: start: 20220913, end: 202210
  2. XPOVIO [Suspect]
     Active Substance: SELINEXOR
     Dosage: 40 MG, WEEKLY FOR 5 WEEKS
     Route: 048
     Dates: start: 202211, end: 202211
  3. BORTEZOMIB [Concomitant]
     Active Substance: BORTEZOMIB
     Dosage: 1.3 MG/M2
  4. DEXAMETHASONE [Concomitant]
     Active Substance: DEXAMETHASONE
     Dosage: UNK
     Dates: start: 20220913

REACTIONS (6)
  - Death [Fatal]
  - Bacterial infection [Unknown]
  - Constipation [Unknown]
  - Decreased appetite [Unknown]
  - Platelet count decreased [Not Recovered/Not Resolved]
  - Hyponatraemia [Unknown]

NARRATIVE: CASE EVENT DATE: 20220101
